FAERS Safety Report 18049765 (Version 1)
Quarter: 2020Q3

REPORT INFORMATION
  Report Type: Spontaneous
  Country: US (occurrence: US)
  Receive Date: 20200721
  Receipt Date: 20200721
  Transmission Date: 20201103
  Serious: No
  Sender: FDA-Public Use
  Company Number: None

PATIENT
  Age: 66 Year
  Sex: Female

DRUGS (1)
  1. LEVOTHYROXIN [Suspect]
     Active Substance: LEVOTHYROXINE
     Route: 048
     Dates: start: 20190501

REACTIONS (3)
  - Product quality issue [None]
  - Dizziness [None]
  - Fatigue [None]

NARRATIVE: CASE EVENT DATE: 20200718
